FAERS Safety Report 6695946-8 (Version None)
Quarter: 2010Q2

REPORT INFORMATION
  Report Type: 
  Country: None (occurrence: None)
  Receive Date: 20100422
  Receipt Date: 20100422
  Transmission Date: 20101027
  Serious: Yes (Other)
  Sender: FDA-Public Use
  Company Number: None

PATIENT
  Sex: Female
  Weight: 49.5 kg

DRUGS (10)
  1. ABRAXANE [Suspect]
     Indication: PANCREATIC CARCINOMA
     Dosage: 121 MG D1 D8 D15/CYCLE 042
     Dates: start: 20091008, end: 20100408
  2. VANDETANIB [Suspect]
     Indication: PANCREATIC CARCINOMA
     Dosage: 200 MG QD 047
     Dates: start: 20091008, end: 20100414
  3. AMLODIPINE [Concomitant]
  4. METOCLOPRAMIDE HYDROCHLORIDE [Concomitant]
  5. LEXAPRO [Concomitant]
  6. PANCRELIPASE [Concomitant]
  7. ATIVAN [Concomitant]
  8. MARINOL [Concomitant]
  9. BENAZEPRIL HYDROCHLORIDE [Concomitant]
  10. FENTANYL [Concomitant]

REACTIONS (1)
  - PULMONARY EMBOLISM [None]
